FAERS Safety Report 22618815 (Version 1)
Quarter: 2023Q2

REPORT INFORMATION
  Report Type: Report from Study
  Country: CA (occurrence: None)
  Receive Date: 20230620
  Receipt Date: 20230620
  Transmission Date: 20230721
  Serious: Yes (Death, Hospitalization, Other)
  Sender: FDA-Public Use
  Company Number: 2023A120205

PATIENT
  Sex: Male

DRUGS (1)
  1. TAGRISSO [Suspect]
     Active Substance: OSIMERTINIB
     Indication: Non-small cell lung cancer metastatic
     Route: 048
     Dates: start: 20220513

REACTIONS (8)
  - Death [Fatal]
  - Malignant neoplasm progression [Unknown]
  - Oropharyngeal pain [Unknown]
  - Dysphagia [Unknown]
  - Pneumonia [Unknown]
  - Lung disorder [Unknown]
  - Drug ineffective [Unknown]
  - Aspiration [Unknown]
